FAERS Safety Report 12920579 (Version 1)
Quarter: 2016Q4

REPORT INFORMATION
  Report Type: Spontaneous
  Country: US (occurrence: US)
  Receive Date: 20161106
  Receipt Date: 20161106
  Transmission Date: 20170207
  Serious: Yes (Disabling)
  Sender: FDA-Public Use
  Company Number: None

PATIENT
  Age: 51 Year
  Sex: Male
  Weight: 87.75 kg

DRUGS (3)
  1. PRISTIQ EXTENDED-RELEASE [Suspect]
     Active Substance: DESVENLAFAXINE SUCCINATE
     Indication: DEPRESSION
     Dosage: ?          QUANTITY:1 TABLET(S);?
     Route: 048
     Dates: start: 20160602
  2. TOUJEO [Concomitant]
     Active Substance: INSULIN GLARGINE
  3. HUMULIN NOS [Concomitant]
     Active Substance: INSULIN HUMAN

REACTIONS (3)
  - Tinnitus [None]
  - Ear infection [None]
  - Meniere^s disease [None]

NARRATIVE: CASE EVENT DATE: 20160702
